FAERS Safety Report 9409267 (Version 1)
Quarter: 2013Q2

REPORT INFORMATION
  Report Type: Spontaneous
  Country: JP (occurrence: None)
  Receive Date: 20130419
  Receipt Date: 20130419
  Transmission Date: 20140414
  Serious: Yes (Other)
  Sender: FDA-Public Use
  Company Number: VAL_02293_2013

PATIENT
  Age: 33 Year
  Sex: Female
  Weight: 52 kg

DRUGS (1)
  1. ROCALTROL [Suspect]
     Indication: PRODUCT USED FOR UNKNOWN INDICATION
     Dosage: (DF) ORAL?
     Route: 048

REACTIONS (5)
  - Pseudohypoparathyroidism [None]
  - Antiphospholipid syndrome [None]
  - Deep vein thrombosis [None]
  - Maternal exposure during pregnancy [None]
  - Caesarean section [None]
